FAERS Safety Report 7879008-X (Version None)
Quarter: 2011Q4

REPORT INFORMATION
  Report Type: 
  Country: None (occurrence: None)
  Receive Date: 20111101
  Receipt Date: 20111024
  Transmission Date: 20120403
  Serious: Yes (Hospitalization, Other)
  Sender: FDA-Public Use
  Company Number: PHHY2011FR94724

PATIENT
  Sex: Male

DRUGS (7)
  1. ZOMETA [Suspect]
     Dosage: 4 MG, UNK
     Dates: start: 20110907
  2. METFORMIN HCL [Concomitant]
  3. KETOPROFEN [Concomitant]
  4. IRBESARTAN [Concomitant]
  5. GLIMEPIRIDE [Concomitant]
  6. ZOLADEX [Suspect]
     Dosage: 1.8 MG, Q3MO
     Route: 058
     Dates: start: 20020101, end: 20110906
  7. CASODEX [Concomitant]
     Dates: start: 20110801

REACTIONS (7)
  - ALTERED STATE OF CONSCIOUSNESS [None]
  - PYREXIA [None]
  - BREATH SOUNDS ABNORMAL [None]
  - URINARY INCONTINENCE [None]
  - BLOOD GLUCOSE INCREASED [None]
  - CONVULSION [None]
  - PARANEOPLASTIC SYNDROME [None]
